FAERS Safety Report 9133811 (Version 1)
Quarter: 2013Q1

REPORT INFORMATION
  Report Type: Spontaneous
  Country: US (occurrence: US)
  Receive Date: 20130303
  Receipt Date: 20130303
  Transmission Date: 20140127
  Serious: No
  Sender: FDA-Public Use
  Company Number: US-ENDO PHARMACEUTICALS INC.-VANT20110012

PATIENT
  Age: 71 Year
  Sex: Male
  Weight: 99.88 kg

DRUGS (1)
  1. VANTAS [Suspect]
     Indication: PROSTATE CANCER
     Dosage: 50 MG
     Route: 058
     Dates: start: 20091211, end: 20110126

REACTIONS (5)
  - Disturbance in attention [Recovering/Resolving]
  - Skin odour abnormal [Recovering/Resolving]
  - Hot flush [Recovering/Resolving]
  - Fatigue [Recovering/Resolving]
  - Malaise [Recovering/Resolving]
